FAERS Safety Report 9224071 (Version 2)
Quarter: 2013Q2

REPORT INFORMATION
  Report Type: Spontaneous
  Country: US (occurrence: US)
  Receive Date: 20130411
  Receipt Date: 20130503
  Transmission Date: 20140414
  Serious: No
  Sender: FDA-Public Use
  Company Number: US-009507513-1304USA004124

PATIENT
  Age: 19 Year
  Sex: Female
  Weight: 105.2 kg

DRUGS (1)
  1. IMPLANON [Suspect]
     Indication: CONTRACEPTION
     Dosage: 1 DF, UNK
     Dates: start: 20100415

REACTIONS (3)
  - Device deployment issue [Unknown]
  - Weight increased [Not Recovered/Not Resolved]
  - Medical device complication [Unknown]
